FAERS Safety Report 6730677-7 (Version None)
Quarter: 2010Q2

REPORT INFORMATION
  Report Type: 
  Country: None (occurrence: None)
  Receive Date: 20100518
  Receipt Date: 20100510
  Transmission Date: 20101027
  Serious: Yes (Other)
  Sender: FDA-Public Use
  Company Number: US-MERCK-0705USA02479

PATIENT
  Age: 60 Year
  Sex: Male
  Weight: 80 kg

DRUGS (2)
  1. FOSAMAX [Suspect]
     Indication: OSTEOPOROSIS
     Route: 048
     Dates: start: 20050314, end: 20060608
  2. LITHIUM SULFATE [Concomitant]
     Indication: DEPRESSION
     Route: 065
     Dates: start: 19900101

REACTIONS (18)
  - ANAEMIA [None]
  - ANXIETY [None]
  - ASTHENIA [None]
  - BLOOD CHOLESTEROL INCREASED [None]
  - BLOOD FOLLICLE STIMULATING HORMONE INCREASED [None]
  - DEPRESSION [None]
  - DIABETES MELLITUS [None]
  - HYPERTENSION [None]
  - OEDEMA MOUTH [None]
  - ORAL INFECTION [None]
  - PAIN IN JAW [None]
  - RENAL FAILURE [None]
  - RENAL IMPAIRMENT [None]
  - SKIN CANCER [None]
  - THERAPEUTIC AGENT TOXICITY [None]
  - TOOTH FRACTURE [None]
  - TOOTH LOSS [None]
  - WOUND [None]
